FAERS Safety Report 5869410-X (Version None)
Quarter: 2008Q3

REPORT INFORMATION
  Report Type: 
  Country: None (occurrence: None)
  Receive Date: 20080828
  Receipt Date: 20080813
  Transmission Date: 20090109
  Serious: Yes (Other)
  Sender: FDA-Public Use
  Company Number: AMAN20080010

PATIENT
  Age: 67 Year
  Sex: Male

DRUGS (12)
  1. AMANTADINE HCL [Suspect]
     Indication: PARKINSON'S DISEASE
     Dosage: 100 MG, DAILY
  2. CARBIDOPA AND LEVODOPA [Suspect]
     Indication: PARKINSON'S DISEASE
     Dosage: 50 MG/100 MG QID, PER ORAL; 25 MG/? MG BID, PER ORAL
  3. RITUXIMAB [Suspect]
     Indication: B-CELL LYMPHOMA
     Dosage: INTRAVENOUS
     Route: 042
     Dates: start: 20080728, end: 20080728
  4. TOLCAPONE [Suspect]
     Indication: PARKINSON'S DISEASE
     Dosage: 100 MG, TID
  5. BROMOCRIPTINE MESYLATE [Suspect]
     Indication: PARKINSON'S DISEASE
     Dosage: 10 MG, DAILY, 2.5 MG, TID
  6. OMEPRAZOLE [Concomitant]
  7. VENLAFAXINE HCL [Concomitant]
  8. ZOPICLONE [Concomitant]
  9. DOCUSATE SODIUM WITH SENNA [Concomitant]
  10. FLUTICASONE PROPIONATE [Concomitant]
  11. IPRATROPIUM BROMIDE [Concomitant]
  12. LORAZEPAM [Concomitant]

REACTIONS (5)
  - B-CELL LYMPHOMA RECURRENT [None]
  - CHILLS [None]
  - DRUG INTERACTION [None]
  - HYPERTENSION [None]
  - MALAISE [None]
